FAERS Safety Report 20392779 (Version 6)
Quarter: 2022Q3

REPORT INFORMATION
  Report Type: Report from Study
  Country: US (occurrence: US)
  Receive Date: 20220128
  Receipt Date: 20220624
  Transmission Date: 20221027
  Serious: No
  Sender: FDA-Public Use
  Company Number: US-NOVARTISTESTPH-NVSC2022US018300

PATIENT
  Sex: Female

DRUGS (2)
  1. KESIMPTA [Suspect]
     Active Substance: OFATUMUMAB
     Indication: Pemphigus
     Dosage: 20 MG, QMO
     Route: 058
     Dates: start: 20211220
  2. KESIMPTA [Suspect]
     Active Substance: OFATUMUMAB
     Dosage: 20 MG, OTHER (ONCE EVERY TWO WEEKS)
     Route: 058
     Dates: start: 20211220

REACTIONS (7)
  - COVID-19 [Not Recovered/Not Resolved]
  - Oropharyngeal pain [Not Recovered/Not Resolved]
  - Paranasal sinus discomfort [Not Recovered/Not Resolved]
  - Hepatic enzyme increased [Unknown]
  - Thyroid disorder [Unknown]
  - Back pain [Recovered/Resolved]
  - Pruritus [Unknown]
